FAERS Safety Report 20736944 (Version 2)
Quarter: 2022Q4

REPORT INFORMATION
  Report Type: Other
  Country: CA (occurrence: CA)
  Receive Date: 20220421
  Receipt Date: 20221108
  Transmission Date: 20230112
  Serious: Yes (Hospitalization, Other)
  Sender: FDA-Public Use
  Company Number: CA-002147023-PHHY2017CA183122

PATIENT
  Age: 32 Year
  Sex: Female

DRUGS (18)
  1. XOLAIR [Suspect]
     Active Substance: OMALIZUMAB
     Indication: Chronic spontaneous urticaria
     Route: 058
     Dates: start: 20140804
  2. XOLAIR [Suspect]
     Active Substance: OMALIZUMAB
     Dosage: UNK
     Route: 058
     Dates: start: 20171207
  3. XOLAIR [Suspect]
     Active Substance: OMALIZUMAB
     Dosage: UNK
     Route: 058
     Dates: start: 20171228
  4. XOLAIR [Suspect]
     Active Substance: OMALIZUMAB
     Dosage: UNK
     Route: 058
     Dates: start: 20180118
  5. XOLAIR [Suspect]
     Active Substance: OMALIZUMAB
     Dosage: 150 MG, EVERY 3 WEEKS
     Route: 058
     Dates: start: 20180301
  6. XOLAIR [Suspect]
     Active Substance: OMALIZUMAB
     Route: 058
     Dates: start: 20180412
  7. XOLAIR [Suspect]
     Active Substance: OMALIZUMAB
     Route: 058
     Dates: start: 20180503
  8. XOLAIR [Suspect]
     Active Substance: OMALIZUMAB
     Dosage: RECEIVED PARTIAL DOSAGE OF NEW PRESCRIPTION OF 300 MG
     Route: 058
     Dates: start: 20181024
  9. XOLAIR [Suspect]
     Active Substance: OMALIZUMAB
     Route: 058
     Dates: start: 20181115
  10. XOLAIR [Suspect]
     Active Substance: OMALIZUMAB
     Route: 058
     Dates: start: 20181230
  11. XOLAIR [Suspect]
     Active Substance: OMALIZUMAB
     Route: 058
     Dates: start: 20190110
  12. XOLAIR [Suspect]
     Active Substance: OMALIZUMAB
     Route: 058
     Dates: start: 201901, end: 201901
  13. XOLAIR [Suspect]
     Active Substance: OMALIZUMAB
     Route: 058
     Dates: start: 20190826, end: 2019
  14. XOLAIR [Suspect]
     Active Substance: OMALIZUMAB
     Route: 058
     Dates: start: 20190919, end: 2019
  15. XOLAIR [Suspect]
     Active Substance: OMALIZUMAB
     Route: 058
     Dates: start: 20191218
  16. XOLAIR [Suspect]
     Active Substance: OMALIZUMAB
     Route: 058
     Dates: start: 20150130
  17. XOLAIR [Suspect]
     Active Substance: OMALIZUMAB
     Route: 058
  18. XOLAIR [Suspect]
     Active Substance: OMALIZUMAB
     Route: 058
     Dates: start: 20201027

REACTIONS (28)
  - Pneumonia [Recovering/Resolving]
  - Dyspnoea [Recovering/Resolving]
  - Pharyngitis [Recovering/Resolving]
  - Urticaria [Recovered/Resolved]
  - Skin plaque [Unknown]
  - Urticaria [Unknown]
  - Dizziness [Unknown]
  - Mobility decreased [Unknown]
  - Peripheral swelling [Unknown]
  - Dry mouth [Unknown]
  - Oedema [Unknown]
  - Erythema [Unknown]
  - Insomnia [Unknown]
  - Thermal burn [Unknown]
  - Stress [Unknown]
  - Pruritus [Unknown]
  - Oedema peripheral [Unknown]
  - Papule [Unknown]
  - Allergy to synthetic fabric [Unknown]
  - Temperature intolerance [Unknown]
  - Sensitivity to weather change [Unknown]
  - Laryngitis [Recovering/Resolving]
  - Cough [Not Recovered/Not Resolved]
  - Myalgia [Unknown]
  - Incorrect dose administered [Unknown]
  - Inappropriate schedule of product administration [Unknown]
  - Product dose omission issue [Unknown]
  - Drug ineffective [Unknown]

NARRATIVE: CASE EVENT DATE: 20171116
